FAERS Safety Report 5308592-5 (Version None)
Quarter: 2007Q2

REPORT INFORMATION
  Report Type: 
  Country: None (occurrence: None)
  Receive Date: 20070426
  Receipt Date: 20070416
  Transmission Date: 20071010
  Serious: Yes (Other)
  Sender: FDA-Public Use
  Company Number: DE-AVENTIS-200711065DE

PATIENT
  Age: 37 Year
  Sex: Male
  Weight: 114 kg

DRUGS (5)
  1. TELFAST                            /01314201/ [Suspect]
     Indication: HYPERSENSITIVITY
     Dosage: DOSE: 1 TABLET
     Route: 048
     Dates: start: 20061101
  2. ACOMPLIA [Suspect]
     Indication: WEIGHT CONTROL
     Route: 048
     Dates: start: 20070117, end: 20070401
  3. METFORMIN [Suspect]
     Indication: DIABETES MELLITUS NON-INSULIN-DEPENDENT
     Route: 048
     Dates: start: 20060420
  4. L-THYROXIN [Concomitant]
     Indication: HYPOTHYROIDISM
     Route: 048
     Dates: start: 20031001
  5. THYBON [Concomitant]
     Indication: HYPOTHYROIDISM
     Route: 048
     Dates: start: 20031001

REACTIONS (8)
  - AMNESIA [None]
  - DIZZINESS [None]
  - FALL [None]
  - HALLUCINATION, VISUAL [None]
  - LOSS OF CONSCIOUSNESS [None]
  - NAUSEA [None]
  - PANIC ATTACK [None]
  - SKIN LACERATION [None]
